FAERS Safety Report 9308967 (Version 2)
Quarter: 2013Q3

REPORT INFORMATION
  Report Type: Spontaneous
  Country: US (occurrence: US)
  Receive Date: 20130524
  Receipt Date: 20130903
  Transmission Date: 20140515
  Serious: Yes (Death, Hospitalization)
  Sender: FDA-Public Use
  Company Number: US-B.I. PHARMACEUTICALS,INC./RIDGEFIELD-2013-BI-14545BP

PATIENT
  Sex: Male
  Weight: 108.86 kg

DRUGS (9)
  1. PRADAXA [Suspect]
     Indication: ATRIAL FIBRILLATION
     Dosage: 300 MG
     Route: 048
     Dates: start: 20110720, end: 20110816
  2. NEURONTIN [Concomitant]
     Dosage: 600 MG
     Route: 048
  3. METHOTREXATE [Concomitant]
     Dosage: 2.5 MG
     Route: 048
  4. PHENERGAN [Concomitant]
     Route: 048
  5. NORCO [Concomitant]
     Route: 048
  6. NIASPAN [Concomitant]
     Dosage: 2000 MG
     Route: 048
  7. PRILOSEC [Concomitant]
     Dosage: 20 MG
     Route: 048
  8. ZOCOR [Concomitant]
     Dosage: 40 MG
     Route: 048
  9. FOLIC ACID [Concomitant]
     Dosage: 2 MG
     Route: 048

REACTIONS (3)
  - Large intestine perforation [Fatal]
  - Rectal haemorrhage [Unknown]
  - Anaemia [Unknown]
